FAERS Safety Report 6329878-1 (Version None)
Quarter: 2009Q4

REPORT INFORMATION
  Report Type: 
  Country: None (occurrence: None)
  Receive Date: 20090825
  Receipt Date: 20090810
  Transmission Date: 20100525
  Serious: Yes (Hospitalization, Other)
  Sender: FDA-Public Use
  Company Number: TW-000005

PATIENT
  Age: 66 Year
  Sex: Female

DRUGS (11)
  1. IOPAMIDOL [Suspect]
     Indication: ARTERIOGRAM CORONARY
     Dosage: INTRA-ARTERIAL
     Route: 013
     Dates: start: 20060608, end: 20060608
  2. TELMISARTAN [Suspect]
     Indication: ACUTE MYOCARDIAL INFARCTION
     Dates: start: 20060608, end: 20060613
  3. GLIMEPIRIDE [Concomitant]
  4. METFORMIN HCL [Concomitant]
  5. OXYGEN (OXYGEN) [Concomitant]
  6. HEPARIN [Concomitant]
  7. NITROGLYCERIN [Concomitant]
  8. FUROSEMIDE [Concomitant]
  9. ASPIRIN [Concomitant]
  10. CLOPIDOGREL [Concomitant]
  11. METOPROLOL TARTRATE [Concomitant]

REACTIONS (8)
  - BLOOD GLUCOSE INCREASED [None]
  - BLOOD SODIUM DECREASED [None]
  - DECREASED APPETITE [None]
  - DRUG LEVEL INCREASED [None]
  - HYPOGLYCAEMIA [None]
  - NEPHROPATHY TOXIC [None]
  - RENAL FAILURE ACUTE [None]
  - TROPONIN INCREASED [None]
